FAERS Safety Report 25997095 (Version 1)
Quarter: 2025Q4

REPORT INFORMATION
  Report Type: Spontaneous
  Country: US (occurrence: US)
  Receive Date: 20251104
  Receipt Date: 20251104
  Transmission Date: 20260118
  Serious: Yes (Hospitalization)
  Sender: ELI LILLY AND COMPANY
  Company Number: US-ELI_LILLY_AND_COMPANY-US202510032168

PATIENT
  Age: 80 Year
  Sex: Female

DRUGS (1)
  1. ZEPBOUND [Suspect]
     Active Substance: TIRZEPATIDE
     Indication: Cholelithiasis
     Dosage: UNK UNK, UNKNOWN
     Route: 065

REACTIONS (2)
  - Cholecystitis infective [Unknown]
  - Off label use [Unknown]

NARRATIVE: CASE EVENT DATE: 20251012
